FAERS Safety Report 17295892 (Version 1)
Quarter: 2020Q1

REPORT INFORMATION
  Report Type: Spontaneous
  Country: DE (occurrence: DE)
  Receive Date: 20200122
  Receipt Date: 20200122
  Transmission Date: 20200409
  Serious: Yes (Other)
  Sender: FDA-Public Use
  Company Number: DE-AUROBINDO-AUR-APL-2019-023240

PATIENT
  Age: 59 Year
  Sex: Male
  Weight: 82 kg

DRUGS (15)
  1. LEVOFLOXACIN. [Suspect]
     Active Substance: LEVOFLOXACIN
     Indication: DYSURIA
     Dosage: UNK UNK, ONCE A DAY (1/2 DF, DAILY)
     Route: 065
     Dates: end: 20180505
  2. AMOXI-CLAVULAN [Concomitant]
     Indication: BACTERIAL INFECTION
  3. LEVOFLOXACIN. [Suspect]
     Active Substance: LEVOFLOXACIN
     Indication: TESTIS DISCOMFORT
  4. LEVOFLOXACIN. [Suspect]
     Active Substance: LEVOFLOXACIN
     Indication: BACTERIAL INFECTION
     Dosage: UNK UNK, ONCE A DAY (FIRST 500 MG THEN 250 MG)
     Route: 048
     Dates: start: 20180408, end: 201804
  5. AMOXI-CLAVULAN [Concomitant]
     Indication: PROSTATE INFECTION
     Dosage: 1,UNK, ONCE A DAY (1/2 DF, DAILY)
     Route: 065
     Dates: start: 20180601
  6. MOXIFLOXACIN. [Suspect]
     Active Substance: MOXIFLOXACIN
     Indication: PRODUCT USED FOR UNKNOWN INDICATION
     Dosage: UNK
     Route: 048
     Dates: start: 20180408
  7. LEVOFLOXACIN. [Suspect]
     Active Substance: LEVOFLOXACIN
     Indication: PROSTATE INFECTION
     Dosage: 1 UNK, ONCE A DAY
     Route: 048
     Dates: start: 20180408, end: 20180701
  8. LEVOFLOXACIN. [Suspect]
     Active Substance: LEVOFLOXACIN
     Indication: PROSTATITIS
  9. CIPROFLOXACIN. [Suspect]
     Active Substance: CIPROFLOXACIN
     Indication: DYSURIA
  10. CIPROFLOXACIN. [Suspect]
     Active Substance: CIPROFLOXACIN
     Indication: ABDOMINAL PAIN LOWER
  11. PROSTAGUTT [Concomitant]
     Indication: ABDOMINAL PAIN UPPER
     Dosage: UNK
     Route: 065
  12. LEVOFLOXACIN. [Suspect]
     Active Substance: LEVOFLOXACIN
     Indication: ABDOMINAL PAIN LOWER
     Dosage: 1 DOSAGE FORM, ONCE A DAY
     Route: 065
     Dates: start: 20180427
  13. CIPROFLOXACIN. [Suspect]
     Active Substance: CIPROFLOXACIN
     Indication: TESTIS DISCOMFORT
  14. CIPROFLOXACIN. [Suspect]
     Active Substance: CIPROFLOXACIN
     Indication: PROSTATE INFECTION
     Dosage: UNK
     Route: 048
     Dates: start: 20180408, end: 20180701
  15. CIPROFLOXACIN. [Suspect]
     Active Substance: CIPROFLOXACIN
     Indication: BACTERIAL INFECTION
     Dosage: UNK UNK, ONCE A DAY,1 OT, QD
     Route: 048
     Dates: start: 20180518, end: 201805

REACTIONS (24)
  - Musculoskeletal discomfort [Not Recovered/Not Resolved]
  - Haematospermia [Not Recovered/Not Resolved]
  - Arthralgia [Recovering/Resolving]
  - Oedema peripheral [Unknown]
  - Sexual dysfunction [Unknown]
  - Joint effusion [Unknown]
  - Joint swelling [Recovering/Resolving]
  - Pain [Recovering/Resolving]
  - Vision blurred [Recovering/Resolving]
  - Pruritus genital [Unknown]
  - Visual impairment [Recovering/Resolving]
  - Feeling abnormal [Unknown]
  - Nocturia [Recovering/Resolving]
  - Tendon discomfort [Recovering/Resolving]
  - Diarrhoea [Recovered/Resolved]
  - Abdominal pain lower [Unknown]
  - Myalgia [Recovering/Resolving]
  - Lacrimation increased [Recovering/Resolving]
  - Tendonitis [Recovering/Resolving]
  - Pelvic pain [Unknown]
  - Musculoskeletal pain [Unknown]
  - Arthritis [Recovering/Resolving]
  - Rotator cuff syndrome [Recovering/Resolving]
  - Benign prostatic hyperplasia [Unknown]

NARRATIVE: CASE EVENT DATE: 2018
